FAERS Safety Report 5703800-0 (Version None)
Quarter: 2008Q2

REPORT INFORMATION
  Report Type: 
  Country: None (occurrence: None)
  Receive Date: 20080414
  Receipt Date: 20080403
  Transmission Date: 20081010
  Serious: Yes (Hospitalization)
  Sender: FDA-Public Use
  Company Number: CA-JNJFOC-20080402038

PATIENT
  Sex: Male
  Weight: 108 kg

DRUGS (1)
  1. REMICADE [Suspect]
     Indication: CROHN'S DISEASE
     Dosage: 19 DOSES
     Route: 042

REACTIONS (4)
  - ANGIOGRAM [None]
  - ANGIOPLASTY [None]
  - MALAISE [None]
  - STENT PLACEMENT [None]
